FAERS Safety Report 17979113 (Version 1)
Quarter: 2020Q3

REPORT INFORMATION
  Report Type: Report from Study
  Country: AR (occurrence: AR)
  Receive Date: 20200703
  Receipt Date: 20200703
  Transmission Date: 20201103
  Serious: Yes (Death, Hospitalization, Other)
  Sender: FDA-Public Use
  Company Number: AR-BRISTOL-MYERS SQUIBB COMPANY-BMS-2020-051574

PATIENT
  Age: 94 Year
  Sex: Female

DRUGS (1)
  1. APIXABAN [Suspect]
     Active Substance: APIXABAN
     Indication: CEREBROVASCULAR ACCIDENT PROPHYLAXIS
     Dosage: 5 MILLIGRAM
     Route: 065
     Dates: start: 20171130

REACTIONS (7)
  - Death [Fatal]
  - Visual impairment [Unknown]
  - Malaise [Unknown]
  - Productive cough [Unknown]
  - Gait disturbance [Unknown]
  - Depressed mood [Unknown]
  - Nervousness [Unknown]

NARRATIVE: CASE EVENT DATE: 201911
